FAERS Safety Report 10048845 (Version 1)
Quarter: 2014Q1

REPORT INFORMATION
  Report Type: Spontaneous
  Country: IT (occurrence: IT)
  Receive Date: 20140331
  Receipt Date: 20140331
  Transmission Date: 20141002
  Serious: Yes (Other)
  Sender: FDA-Public Use
  Company Number: IT-MYLANLABS-2014S1006314

PATIENT
  Age: 63 Year
  Sex: Male

DRUGS (5)
  1. IRINOTECAN HYDROCHLORIDE TRIHYDRATE [Suspect]
     Indication: COLON CANCER METASTATIC
     Dosage: 360 MG CYCLICAL
     Route: 042
     Dates: start: 20130422, end: 20130912
  2. BEVACIZUMAB [Suspect]
     Indication: COLON CANCER METASTATIC
     Dosage: 490 MG CYCLICAL
     Route: 042
     Dates: start: 20130422, end: 20130528
  3. FLUOROURACIL [Suspect]
     Indication: COLON CANCER METASTATIC
     Dosage: 800 MG CYCLICAL
     Route: 040
     Dates: start: 20130422, end: 20130912
  4. FLUOROURACIL [Suspect]
     Indication: COLON CANCER METASTATIC
     Dosage: 4800 MG CYCLICAL
     Route: 041
     Dates: start: 20130422, end: 20130912
  5. LEVOFOLINIC ACID [Concomitant]
     Indication: PRODUCT USED FOR UNKNOWN INDICATION
     Route: 042
     Dates: start: 20130422, end: 20130912

REACTIONS (1)
  - Proteinuria [Not Recovered/Not Resolved]
